FAERS Safety Report 4939806-9 (Version None)
Quarter: 2006Q1

REPORT INFORMATION
  Report Type: 
  Country: None (occurrence: None)
  Receive Date: 20060307
  Receipt Date: 20060222
  Transmission Date: 20060701
  Serious: Yes (Hospitalization)
  Sender: FDA-Public Use
  Company Number: 2006026249

PATIENT
  Age: 75 Year
  Sex: Male

DRUGS (9)
  1. ATORVASTATIN CALCIUM [Suspect]
     Indication: BLOOD CHOLESTEROL INCREASED
     Dosage: 40 MG (40 MG, 1 IN 1 D), ORAL
     Route: 048
     Dates: start: 20050715, end: 20060202
  2. RAMIPRIL [Concomitant]
  3. FUROSEMIDE [Concomitant]
  4. ASPIRIN [Concomitant]
  5. GLYCERYL TRINITRATE (GLYCERYL TRINITRATE) [Concomitant]
  6. ACETAMINOPHEN [Concomitant]
  7. ASILONE (SIMETICONE) [Concomitant]
  8. FERROUS SULPHATE (FERROUS SULFATE) [Concomitant]
  9. BISOPROLOL (BISOPROLOL) [Concomitant]

REACTIONS (11)
  - ALANINE AMINOTRANSFERASE INCREASED [None]
  - ASTHENIA [None]
  - BLOOD ALKALINE PHOSPHATASE INCREASED [None]
  - BLOOD BILIRUBIN INCREASED [None]
  - BLOOD CREATINE PHOSPHOKINASE INCREASED [None]
  - BLOOD UREA INCREASED [None]
  - FALL [None]
  - GROIN PAIN [None]
  - LIVER FUNCTION TEST ABNORMAL [None]
  - MUSCULAR WEAKNESS [None]
  - PAIN IN EXTREMITY [None]
